FAERS Safety Report 4608079-9 (Version None)
Quarter: 2005Q2

REPORT INFORMATION
  Report Type: 
  Country: None (occurrence: None)
  Receive Date: 20050303
  Receipt Date: 20041130
  Transmission Date: 20051028
  Serious: No
  Sender: FDA-Public Use
  Company Number: 210029

PATIENT
  Age: 15 Year
  Sex: Female

DRUGS (3)
  1. XOLAIR [Suspect]
     Indication: ASTHMA
     Dosage: Q2W; SUBCUTANEOUS
     Route: 058
     Dates: start: 20040528, end: 20041012
  2. ADVAIR (FLUTICASONE PROPIONATE, SALMETEROL XINAFOATE) [Concomitant]
  3. SINGULAIR [Concomitant]

REACTIONS (2)
  - ARTHRALGIA [None]
  - OEDEMA PERIPHERAL [None]
